FAERS Safety Report 24058304 (Version 1)
Quarter: 2024Q3

REPORT INFORMATION
  Report Type: Spontaneous
  Country: ES (occurrence: ES)
  Receive Date: 20240708
  Receipt Date: 20240708
  Transmission Date: 20241016
  Serious: Yes (Life-Threatening, Hospitalization, Other)
  Sender: CELLTRION
  Company Number: ES-CELLTRION INC.-2024ES015979

PATIENT

DRUGS (7)
  1. RITUXIMAB [Suspect]
     Active Substance: RITUXIMAB
     Indication: Richter^s syndrome
     Dosage: 673 MILLIGRAM, TOTAL (RITUXIMAB 375 MG/M2 (673 MG) IV)
     Route: 042
     Dates: start: 20230104, end: 20230104
  2. CYCLOPHOSPHAMIDE [Suspect]
     Active Substance: CYCLOPHOSPHAMIDE
     Indication: Richter^s syndrome
     Dosage: 861 MILLIGRAM, TOTAL
     Route: 042
     Dates: start: 20230108, end: 20230108
  3. DOXORUBICIN [Suspect]
     Active Substance: DOXORUBICIN
     Indication: Richter^s syndrome
     Dosage: 18 MILLIGRAM, EVERY DAY
     Route: 042
     Dates: start: 20230104, end: 20230107
  4. ETOPOSIDE [Suspect]
     Active Substance: ETOPOSIDE
     Indication: Richter^s syndrome
     Dosage: 90 MILLIGRAM, EVERY DAY
     Route: 042
     Dates: start: 20230104, end: 20230107
  5. VINCRISTINE SULFATE [Suspect]
     Active Substance: VINCRISTINE SULFATE
     Indication: Richter^s syndrome
     Dosage: 0.72 MILLIGRAM, EVERY DAY
     Route: 042
     Dates: start: 20230104, end: 20230107
  6. VENETOCLAX [Suspect]
     Active Substance: VENETOCLAX
     Indication: Richter^s syndrome
     Dosage: 400 MILLIGRAM, EVERY DAY
     Route: 048
     Dates: start: 20230106, end: 20230114
  7. VENETOCLAX [Suspect]
     Active Substance: VENETOCLAX
     Dosage: 100 MILLIGRAM, EVERY DAY
     Route: 048
     Dates: start: 20230104, end: 20230105

REACTIONS (1)
  - Agranulocytosis [Recovering/Resolving]

NARRATIVE: CASE EVENT DATE: 20230113
